FAERS Safety Report 20217201 (Version 2)
Quarter: 2022Q1

REPORT INFORMATION
  Report Type: Spontaneous
  Country: MA (occurrence: MA)
  Receive Date: 20211222
  Receipt Date: 20220203
  Transmission Date: 20220423
  Serious: No
  Sender: FDA-Public Use
  Company Number: MA-PFIZER INC-202101655030

PATIENT
  Age: 9 Year
  Sex: Male

DRUGS (1)
  1. GENOTROPIN [Suspect]
     Active Substance: SOMATROPIN
     Dosage: 1 MG, DAILY
     Route: 058

REACTIONS (1)
  - Device failure [Recovered/Resolved]
